FAERS Safety Report 5839400-1 (Version None)
Quarter: 2008Q3

REPORT INFORMATION
  Report Type: 
  Country: None (occurrence: None)
  Receive Date: 20080806
  Receipt Date: 20080729
  Transmission Date: 20090109
  Serious: Yes (Life-Threatening, Hospitalization)
  Sender: FDA-Public Use
  Company Number: GXKR2008GB07119

PATIENT
  Age: 72 Year
  Sex: Female
  Weight: 85 kg

DRUGS (4)
  1. SIMVASTATIN [Suspect]
     Dosage: 40 MG, UNK
     Dates: end: 20080715
  2. CLOPIDOGREL [Suspect]
     Dosage: 75 MG, UNK
     Dates: end: 20080715
  3. METFORMIN HCL [Concomitant]
  4. PERINODOPRIL PERINOPRIL) [Concomitant]

REACTIONS (8)
  - ANAEMIA [None]
  - CONVULSION [None]
  - FALL [None]
  - GLASGOW COMA SCALE ABNORMAL [None]
  - LETHARGY [None]
  - MALAISE [None]
  - SYNCOPE [None]
  - THROMBOTIC THROMBOCYTOPENIC PURPURA [None]
